FAERS Safety Report 19382109 (Version 4)
Quarter: 2021Q3

REPORT INFORMATION
  Report Type: Spontaneous
  Country: DE (occurrence: DE)
  Receive Date: 20210607
  Receipt Date: 20210723
  Transmission Date: 20211014
  Serious: Yes (Other)
  Sender: FDA-Public Use
  Company Number: DE-VER-202100056

PATIENT
  Age: 82 Year
  Sex: Male
  Weight: 65 kg

DRUGS (3)
  1. ELIGARD [Suspect]
     Active Substance: LEUPROLIDE ACETATE
     Indication: PROSTATE CANCER
     Route: 065
  2. ASA [Concomitant]
     Active Substance: ASPIRIN
     Indication: PRODUCT USED FOR UNKNOWN INDICATION
     Route: 065
  3. TRIPTORELIN PAMOATE [Suspect]
     Active Substance: TRIPTORELIN PAMOATE
     Indication: PROSTATE CANCER METASTATIC
     Dosage: (RECEIVED 21 INJECTIONS SO FAR)
     Route: 065
     Dates: start: 201709, end: 202002

REACTIONS (9)
  - Fall [Unknown]
  - Haematocrit decreased [Unknown]
  - Hypoaesthesia [Unknown]
  - Clavicle fracture [Unknown]
  - Iron deficiency [Unknown]
  - Haemoglobin decreased [Unknown]
  - Abdominal distension [Unknown]
  - Pallor [Unknown]
  - Polyneuropathy [Not Recovered/Not Resolved]

NARRATIVE: CASE EVENT DATE: 20190917
